FAERS Safety Report 6667799-5 (Version None)
Quarter: 2010Q2

REPORT INFORMATION
  Report Type: 
  Country: None (occurrence: None)
  Receive Date: 20100405
  Receipt Date: 20100323
  Transmission Date: 20101027
  Serious: Yes (Other)
  Sender: FDA-Public Use
  Company Number: PHHY2010US16296

PATIENT
  Sex: Female

DRUGS (1)
  1. ZADITOR [Suspect]
     Indication: HYPERSENSITIVITY
     Dosage: UNK, BID
     Route: 061
     Dates: start: 20100304, end: 20100315

REACTIONS (1)
  - INTRAOCULAR PRESSURE INCREASED [None]
